FAERS Safety Report 6014374-1 (Version None)
Quarter: 2008Q4

REPORT INFORMATION
  Report Type: 
  Country: None (occurrence: None)
  Receive Date: 20081219
  Receipt Date: 20080627
  Transmission Date: 20090506
  Serious: No
  Sender: FDA-Public Use
  Company Number: A0728524A

PATIENT
  Age: 72 Year
  Sex: Male

DRUGS (9)
  1. AVODART [Suspect]
     Indication: BENIGN PROSTATIC HYPERPLASIA
     Dosage: 1MG PER DAY
     Route: 048
     Dates: start: 20080501, end: 20080509
  2. AVODART [Suspect]
     Dosage: .5MG PER DAY
     Route: 048
     Dates: start: 20080601
  3. FLOMAX [Concomitant]
  4. GLUCOPHAGE [Concomitant]
  5. XANAX [Concomitant]
  6. SERTRALINE [Concomitant]
  7. GABAPENTIN [Concomitant]
  8. CLONOPIN [Concomitant]
  9. NOVOLIN 70/30 [Concomitant]

REACTIONS (5)
  - ASTHENIA [None]
  - HYPERHIDROSIS [None]
  - NAUSEA [None]
  - THERAPEUTIC RESPONSE DECREASED [None]
  - VOMITING [None]
